FAERS Safety Report 4514115-0 (Version None)
Quarter: 2004Q4

REPORT INFORMATION
  Report Type: 
  Country: None (occurrence: None)
  Receive Date: 20041124
  Receipt Date: 20041116
  Transmission Date: 20050328
  Serious: Yes (Other)
  Sender: FDA-Public Use
  Company Number: 2004-11-0977

PATIENT
  Age: 34 Year
  Sex: Female

DRUGS (2)
  1. PEGYLATED INTERFERON ALFA-2A INJECTABLE [Suspect]
     Indication: HEPATITIS C
  2. RIBAVIRIN [Suspect]
     Indication: HEPATITIS C
     Dosage: ORAL
     Route: 048

REACTIONS (5)
  - ANAEMIA [None]
  - ANTIBODY TEST POSITIVE [None]
  - ANTIGLIADIN ANTIBODY POSITIVE [None]
  - INTESTINAL VILLI ATROPHY [None]
  - MALAISE [None]
